FAERS Safety Report 24322149 (Version 1)
Quarter: 2024Q3

REPORT INFORMATION
  Report Type: Spontaneous
  Country: BR (occurrence: BR)
  Receive Date: 20240916
  Receipt Date: 20240916
  Transmission Date: 20241017
  Serious: Yes (Other)
  Sender: TEVA
  Company Number: BR-TEVA-VS-3242588

PATIENT
  Age: 84 Year
  Sex: Female

DRUGS (1)
  1. AZILECT [Suspect]
     Active Substance: RASAGILINE MESYLATE
     Indication: Parkinson^s disease
     Route: 065
     Dates: start: 2013

REACTIONS (6)
  - Tendonitis [Unknown]
  - Tremor [Unknown]
  - Malaise [Unknown]
  - Vertigo [Unknown]
  - Cartilage injury [Unknown]
  - Osteoarthritis [Unknown]

NARRATIVE: CASE EVENT DATE: 20191201
